FAERS Safety Report 10671646 (Version 1)
Quarter: 2014Q4

REPORT INFORMATION
  Report Type: Report from Study
  Country: US (occurrence: US)
  Receive Date: 20141223
  Receipt Date: 20141223
  Transmission Date: 20150529
  Serious: No
  Sender: FDA-Public Use
  Company Number: US-GLAXOSMITHKLINE-US2014GSK040251

PATIENT
  Age: 47 Year
  Sex: Female

DRUGS (1)
  1. NICOTINE TRANSDERMAL PATCH [Suspect]
     Active Substance: NICOTINE
     Route: 062

REACTIONS (3)
  - Application site swelling [Unknown]
  - Application site erythema [Unknown]
  - Application site pruritus [Unknown]
